FAERS Safety Report 9846367 (Version 1)
Quarter: 2013Q4

REPORT INFORMATION
  Report Type: Spontaneous
  Country: US (occurrence: None)
  Receive Date: 20131223
  Receipt Date: 20131223
  Transmission Date: 20140711
  Serious: No
  Sender: FDA-Public Use
  Company Number: CABO-13003342

PATIENT
  Age: 68 Year
  Sex: Male
  Weight: 104.5 kg

DRUGS (11)
  1. COMETRIQ [Suspect]
     Indication: PROSTATE CANCER
     Route: 048
     Dates: start: 20130508, end: 2013
  2. COMETRIQ [Suspect]
     Indication: METASTASES TO BONE
     Route: 048
     Dates: start: 20130508, end: 2013
  3. COMETRIQ [Suspect]
     Indication: METASTASES TO BONE MARROW
     Route: 048
     Dates: start: 20130508, end: 2013
  4. DIOVAN (VALSARTAN) [Concomitant]
  5. FUROSEMIDE (FUROSEMIDE) [Concomitant]
  6. POTASSIUM (POTASSIUM) [Concomitant]
  7. LIPITOR (ATORVASTATIN CALCIUM) [Concomitant]
  8. HYDROCODONE /APAP (HYDROCODONE BITARTRATE, PARACETAMOL) [Concomitant]
  9. HYDROMORPHONE (HYDROMORPHONE) [Concomitant]
  10. XGEVA (DENOSUMAB) [Concomitant]
  11. LUPRON (LEUPRORELIN ACETATE) [Concomitant]

REACTIONS (2)
  - Influenza [None]
  - Off label use [None]
